FAERS Safety Report 18773705 (Version 1)
Quarter: 2021Q1

REPORT INFORMATION
  Report Type: Spontaneous
  Country: US (occurrence: US)
  Receive Date: 20210122
  Receipt Date: 20210122
  Transmission Date: 20210419
  Serious: Yes (Other)
  Sender: FDA-Public Use
  Company Number: US-SUN PHARMACEUTICAL INDUSTRIES LTD-2021R1-276940

PATIENT
  Age: 30 Year
  Sex: Female

DRUGS (8)
  1. QUETIAPINE. [Suspect]
     Active Substance: QUETIAPINE
     Dosage: 100 MILLIGRAM, DAILY (100MG BEDTIME)
     Route: 065
  2. QUETIAPINE. [Suspect]
     Active Substance: QUETIAPINE
     Dosage: (100 MILLIGRAM IN AM , 300 MILLIGRAM AT BEDTIME)UNK
     Route: 065
  3. VENLAFAXINE [Suspect]
     Active Substance: VENLAFAXINE HYDROCHLORIDE
     Indication: ANTIDEPRESSANT THERAPY
     Dosage: 900 MILLIGRAM
     Route: 065
  4. VENLAFAXINE [Suspect]
     Active Substance: VENLAFAXINE HYDROCHLORIDE
     Dosage: 150 MILLIGRAM, DAILY (150 MILLIGRAM , MORNING)
     Route: 065
  5. TRAZODONE [Suspect]
     Active Substance: TRAZODONE HYDROCHLORIDE
     Dosage: 100 MILLIGRAM AT BEDTIME
     Route: 065
  6. TRAZODONE [Suspect]
     Active Substance: TRAZODONE HYDROCHLORIDE
     Indication: ANTIDEPRESSANT THERAPY
     Dosage: 1200 MILLIGRAM , UNK
     Route: 065
  7. QUETIAPINE. [Suspect]
     Active Substance: QUETIAPINE
     Indication: ANTIDEPRESSANT THERAPY
     Dosage: 1200 MILLIGRAM , UNK
     Route: 065
  8. VENLAFAXINE [Suspect]
     Active Substance: VENLAFAXINE HYDROCHLORIDE
     Dosage: 225 MILLIGRAM, DAILY
     Route: 065

REACTIONS (2)
  - Suicide attempt [Unknown]
  - Overdose [Unknown]
